FAERS Safety Report 6714301-5 (Version None)
Quarter: 2010Q2

REPORT INFORMATION
  Report Type: 
  Country: None (occurrence: None)
  Receive Date: 20100504
  Receipt Date: 20100422
  Transmission Date: 20101027
  Serious: Yes (Other)
  Sender: FDA-Public Use
  Company Number: OSCN-NO-0810L-0592

PATIENT
  Age: 71 Year
  Sex: Male

DRUGS (9)
  1. OMNISCAN [Suspect]
     Indication: PERIPHERAL ISCHAEMIA
     Dosage: 15 ML, SINGLE DOSE, I.V.
     Route: 042
     Dates: start: 20011211, end: 20011211
  2. OMNISCAN [Suspect]
     Indication: PERIPHERAL ISCHAEMIA
     Dosage: 15 ML, SINGLE DOSE, I.V.
     Route: 042
     Dates: start: 20011218, end: 20011218
  3. OMNISCAN [Suspect]
     Indication: PERIPHERAL ISCHAEMIA
     Dosage: 15 ML, SINGLE DOSE, I.V.
     Route: 042
     Dates: start: 20030430, end: 20030430
  4. MAGNEVIST [Concomitant]
  5. CALCIUM CARBONATE (CALTAN) [Concomitant]
  6. CEFDINIR (CEFZON) [Concomitant]
  7. AMPICILLIN SODIUM W/SULBACTAM SODIUM (UNASYN S) [Concomitant]
  8. CEFTAZIDIME (MODACIN) [Concomitant]
  9. CEFOTIAM HYDROCHLORIDE (PANSPORIN) [Concomitant]

REACTIONS (6)
  - BLOOD LACTATE DEHYDROGENASE DECREASED [None]
  - BLOOD PARATHYROID HORMONE INCREASED [None]
  - HAEMOGLOBIN DECREASED [None]
  - NEPHROGENIC SYSTEMIC FIBROSIS [None]
  - RED BLOOD CELL COUNT DECREASED [None]
  - WHITE BLOOD CELL COUNT DECREASED [None]
